FAERS Safety Report 7061504-9 (Version None)
Quarter: 2010Q4

REPORT INFORMATION
  Report Type: 
  Country: None (occurrence: None)
  Receive Date: 20101026
  Receipt Date: 20101012
  Transmission Date: 20110411
  Serious: Yes (Other)
  Sender: FDA-Public Use
  Company Number: JP-PFIZER INC-2010134580

PATIENT
  Age: 55 Year
  Sex: Male

DRUGS (2)
  1. LIPITOR [Suspect]
     Dosage: 10 MG, 1X/DAY
     Route: 048
  2. LUVOX [Suspect]
     Route: 048

REACTIONS (1)
  - PERICARDIAL EFFUSION [None]
